FAERS Safety Report 15708802 (Version 2)
Quarter: 2019Q1

REPORT INFORMATION
  Report Type: Spontaneous
  Country: IT (occurrence: IT)
  Receive Date: 20181211
  Receipt Date: 20190108
  Transmission Date: 20190417
  Serious: Yes (Hospitalization, Other)
  Sender: FDA-Public Use
  Company Number: IT-TEVA-2018-IT-985815

PATIENT
  Age: 52 Year
  Sex: Male

DRUGS (3)
  1. DOCETAXEL. [Suspect]
     Active Substance: DOCETAXEL
     Indication: SQUAMOUS CELL CARCINOMA
     Dosage: STARTED WITH CISPLATIN, AND CONTINUED AS MONOTHERAPY AFTER CISPLATIN DISCONTINUATION
     Route: 065
     Dates: start: 201506, end: 201607
  2. DOCETAXEL. [Suspect]
     Active Substance: DOCETAXEL
     Indication: SQUAMOUS CELL CARCINOMA
     Dosage: RESTARTED BUT DISCONTINUED AFTER 2 ONCE WEEKLY CYCLES
     Route: 065
     Dates: start: 201611
  3. CISPLATIN. [Suspect]
     Active Substance: CISPLATIN
     Indication: SQUAMOUS CELL CARCINOMA
     Dosage: ALONG WITH FLUOROURACIL TILL SEP2015 AND THEN WITH DOCETAXEL
     Route: 065
     Dates: start: 201506

REACTIONS (2)
  - Neurotoxicity [Unknown]
  - Atypical haemolytic uraemic syndrome [Recovering/Resolving]
